FAERS Safety Report 7232366-1 (Version None)
Quarter: 2010Q4

REPORT INFORMATION
  Report Type: 
  Country: None (occurrence: None)
  Receive Date: 20101222
  Receipt Date: 20101207
  Transmission Date: 20110411
  Serious: Yes (Hospitalization)
  Sender: FDA-Public Use
  Company Number: 2010US000080

PATIENT
  Age: 80 Year
  Sex: Female

DRUGS (1)
  1. ENTEREG [Suspect]
     Indication: POSTOPERATIVE ILEUS
     Dosage: 12 MG
     Dates: start: 20101001, end: 20101001

REACTIONS (2)
  - HYPERCAPNIA [None]
  - SUPRAVENTRICULAR TACHYCARDIA [None]
